FAERS Safety Report 10667041 (Version 1)
Quarter: 2014Q4

REPORT INFORMATION
  Report Type: Spontaneous
  Country: GB (occurrence: GB)
  Receive Date: 20141222
  Receipt Date: 20141222
  Transmission Date: 20150529
  Serious: Yes (Congenital Anomaly)
  Sender: FDA-Public Use
  Company Number: GB-ORION CORPORATION ORION PHARMA-ENT 2014-0246

PATIENT

DRUGS (2)
  1. SINEMET [Suspect]
     Active Substance: CARBIDOPA\LEVODOPA
     Route: 064
  2. COMTESS [Suspect]
     Active Substance: ENTACAPONE
     Route: 064

REACTIONS (2)
  - Encephalocele [Unknown]
  - Foetal exposure during pregnancy [Unknown]
